FAERS Safety Report 5924574-4 (Version None)
Quarter: 2008Q4

REPORT INFORMATION
  Report Type: 
  Country: None (occurrence: None)
  Receive Date: 20081016
  Receipt Date: 20081006
  Transmission Date: 20090506
  Serious: Yes (Death)
  Sender: FDA-Public Use
  Company Number: US024601

PATIENT
  Age: 47 Year
  Sex: Male
  Weight: 47.1741 kg

DRUGS (5)
  1. ACTIQ [Suspect]
     Indication: CANCER PAIN
     Dosage: 200 UG BUCCAL
     Route: 002
     Dates: start: 20070101, end: 20070803
  2. FENTORA [Concomitant]
  3. MORPHINE [Concomitant]
  4. CHEMOTHERAPY [Concomitant]
  5. FENTANYL TRANSDERMAL SYSTEM [Concomitant]

REACTIONS (1)
  - MEDICATION ERROR [None]
